FAERS Safety Report 8437099-1 (Version None)
Quarter: 2012Q2

REPORT INFORMATION
  Report Type: 
  Country: None (occurrence: None)
  Receive Date: 20120614
  Receipt Date: 20120507
  Transmission Date: 20120825
  Serious: No
  Sender: FDA-Public Use
  Company Number: US-AMGEN-USASP2011052251

PATIENT
  Age: 57 Year
  Sex: Female
  Weight: 54 kg

DRUGS (13)
  1. PROLIA [Suspect]
     Indication: OSTEOPOROSIS POSTMENOPAUSAL
     Dosage: 60 MG, Q6MO
     Route: 058
     Dates: start: 20110516
  2. PREDNISONE TAB [Concomitant]
     Indication: INFLAMMATION
  3. ACTONEL [Concomitant]
     Dosage: 150 MG, UNK
  4. CELEBREX [Concomitant]
     Indication: ARTHRALGIA
     Dosage: UNK UNK, PRN
  5. ALAVERT ALLERGY + SINUS D-12 [Concomitant]
     Dosage: UNK
  6. PROLIA [Suspect]
     Dosage: 60 MG, Q6MO
     Route: 058
     Dates: start: 20111114
  7. ACIPHEX [Concomitant]
     Indication: GASTROOESOPHAGEAL REFLUX DISEASE
     Dosage: UNK UNK, QD
  8. ACYCLOVIR [Concomitant]
  9. CLINDAMYCIN [Concomitant]
     Indication: FOREIGN BODY
  10. CALCIUM WITH VITAMIN D             /00944201/ [Concomitant]
     Dosage: 3 MG, QD
  11. MULTI-VITAMIN [Concomitant]
  12. CLINDAMYCIN [Concomitant]
     Indication: TOOTH INFECTION
  13. M.V.I. [Concomitant]
     Dosage: UNK

REACTIONS (4)
  - POST PROCEDURAL COMPLICATION [None]
  - TOOTH INFECTION [None]
  - TOOTH DISORDER [None]
  - FOREIGN BODY [None]
